FAERS Safety Report 9736042 (Version 2)
Quarter: 2013Q4

REPORT INFORMATION
  Report Type: Spontaneous
  Country: BR (occurrence: BR)
  Receive Date: 20131206
  Receipt Date: 20131206
  Transmission Date: 20140711
  Serious: Yes (Other)
  Sender: FDA-Public Use
  Company Number: BR-PFIZER INC-2013337272

PATIENT
  Age: 77 Year
  Sex: Female
  Weight: 75 kg

DRUGS (3)
  1. DETRUSITOL LA [Suspect]
     Indication: URINARY INCONTINENCE
     Dosage: UNK
     Dates: start: 20131122
  2. KETOCONAZOLE [Interacting]
     Indication: VULVOVAGINAL DISCOMFORT
  3. FRONTAL [Concomitant]

REACTIONS (5)
  - Arrhythmia [Unknown]
  - Blood pressure decreased [Unknown]
  - Headache [Unknown]
  - Drug interaction [Unknown]
  - Tachycardia [Unknown]
